FAERS Safety Report 24592372 (Version 2)
Quarter: 2025Q1

REPORT INFORMATION
  Report Type: Spontaneous
  Country: JP (occurrence: JP)
  Receive Date: 20241108
  Receipt Date: 20250214
  Transmission Date: 20250408
  Serious: Yes (Death)
  Sender: AKEBIA THERAPEUTICS
  Company Number: JP-IQVIA-JT2024JP000396

PATIENT
  Age: 77 Year
  Sex: Female
  Weight: 43 kg

DRUGS (7)
  1. FERRIC CITRATE ANHYDROUS [Suspect]
     Active Substance: FERRIC CITRATE ANHYDROUS
     Indication: Product used for unknown indication
     Dosage: 250 MILLIGRAM, TID
     Route: 048
     Dates: end: 20240713
  2. ENARODUSTAT [Suspect]
     Active Substance: ENARODUSTAT
     Indication: Nephrogenic anaemia
     Dosage: 6 MILLIGRAM
     Route: 048
     Dates: start: 20240605, end: 20240713
  3. LEVOTHYROXINE SODIUM [Concomitant]
     Active Substance: LEVOTHYROXINE SODIUM
     Indication: Hypothyroidism
     Dosage: 100 MICROGRAM, QD
     Route: 048
  4. FUROSEMIDE [Concomitant]
     Active Substance: FUROSEMIDE
     Indication: Glomerulonephritis chronic
     Dosage: 120 MILLIGRAM, QD
     Route: 048
     Dates: end: 20240713
  5. TRICHLORMETHIAZIDE [Concomitant]
     Active Substance: TRICHLORMETHIAZIDE
     Indication: Glomerulonephritis chronic
     Dosage: 2 MILLIGRAM, QD
     Route: 048
     Dates: end: 20240713
  6. ROCALTROL [Concomitant]
     Active Substance: CALCITRIOL
     Indication: Glomerulonephritis chronic
     Dosage: 0.25 MICROGRAM, QD
     Route: 048
     Dates: end: 20240713
  7. EVOCALCET [Concomitant]
     Active Substance: EVOCALCET
     Indication: Glomerulonephritis chronic
     Dosage: 1 MILLIGRAM, QD
     Route: 048
     Dates: end: 20240713

REACTIONS (1)
  - Pneumonia [Fatal]

NARRATIVE: CASE EVENT DATE: 20240628
